FAERS Safety Report 4427887-0 (Version None)
Quarter: 2004Q3

REPORT INFORMATION
  Report Type: 
  Country: None (occurrence: None)
  Receive Date: 20040813
  Receipt Date: 20040729
  Transmission Date: 20050211
  Serious: Yes (Death, Hospitalization, Other)
  Sender: FDA-Public Use
  Company Number: A-US2004-06861

PATIENT
  Age: 84 Year
  Sex: Female

DRUGS (3)
  1. TRACLEER [Suspect]
     Indication: PULMONARY HYPERTENSION
     Dosage: 125 MB, BID ORAL
     Route: 048
     Dates: start: 20030616, end: 20040628
  2. LASIX [Concomitant]
  3. HEPARIN [Concomitant]

REACTIONS (9)
  - DEEP VEIN THROMBOSIS [None]
  - DIALYSIS [None]
  - HAEMATOMA [None]
  - HAEMORRHAGE [None]
  - HEPATIC INFARCTION [None]
  - HYPOTENSION [None]
  - MYOCARDIAL INFARCTION [None]
  - RENAL FAILURE [None]
  - RESPIRATORY FAILURE [None]
